FAERS Safety Report 15934658 (Version 3)
Quarter: 2019Q2

REPORT INFORMATION
  Report Type: Report from Study
  Country: GB (occurrence: GB)
  Receive Date: 20190207
  Receipt Date: 20190415
  Transmission Date: 20190711
  Serious: Yes (Other)
  Sender: FDA-Public Use
  Company Number: PHHY2019GB008762

PATIENT
  Sex: Male

DRUGS (2)
  1. COSENTYX [Suspect]
     Active Substance: SECUKINUMAB
     Indication: PRODUCT USED FOR UNKNOWN INDICATION
     Dosage: 150 MG, UNK
     Route: 058
     Dates: start: 20181228
  2. COSENTYX [Suspect]
     Active Substance: SECUKINUMAB
     Dosage: 150 MG, QMO (EVERY 4 WEEKS)
     Route: 058

REACTIONS (13)
  - Lower respiratory tract infection [Unknown]
  - Tremor [Unknown]
  - Oropharyngeal pain [Unknown]
  - Rhinorrhoea [Unknown]
  - Dizziness [Unknown]
  - Presyncope [Unknown]
  - Pleurisy [Unknown]
  - Headache [Unknown]
  - Asthenia [Unknown]
  - Oxygen consumption decreased [Unknown]
  - Cough [Unknown]
  - Malaise [Unknown]
  - Pain [Unknown]
